FAERS Safety Report 26004406 (Version 1)
Quarter: 2025Q4

REPORT INFORMATION
  Report Type: Spontaneous
  Country: US (occurrence: US)
  Receive Date: 20251106
  Receipt Date: 20251106
  Transmission Date: 20260117
  Serious: No
  Sender: TEVA
  Company Number: US-TEVA-VS-3386699

PATIENT

DRUGS (1)
  1. BUPRENORPHINE [Suspect]
     Active Substance: BUPRENORPHINE
     Indication: Product used for unknown indication
     Dosage: 10MCG/HR
     Route: 065

REACTIONS (3)
  - Therapeutic product effect incomplete [Unknown]
  - Product adhesion issue [Unknown]
  - Poor quality product administered [Unknown]
